FAERS Safety Report 8406503-7 (Version None)
Quarter: 2012Q2

REPORT INFORMATION
  Report Type: 
  Country: None (occurrence: None)
  Receive Date: 20120529
  Receipt Date: 20060613
  Transmission Date: 20120825
  Serious: Yes (Hospitalization)
  Sender: FDA-Public Use
  Company Number: 15691-USA-06-1503

PATIENT
  Age: 52 Year
  Sex: Female

DRUGS (4)
  1. TOLVAPTAN (TOLVAPTAN(V4.1)) 30MG [Suspect]
     Indication: CARDIAC FAILURE CONGESTIVE
     Dosage: 30 MG, QD, ORAL
     Route: 048
     Dates: start: 20050915
  2. CAPTOPRIL [Concomitant]
  3. SPIRONOLACTONE [Concomitant]
  4. PROPRANOLOL [Concomitant]

REACTIONS (7)
  - DYSPNOEA [None]
  - TACHYCARDIA [None]
  - ERYTHEMA [None]
  - CHEST PAIN [None]
  - ATRIOVENTRICULAR BLOCK SECOND DEGREE [None]
  - ATRIAL FLUTTER [None]
  - PALPITATIONS [None]
